FAERS Safety Report 7812314-3 (Version None)
Quarter: 2011Q4

REPORT INFORMATION
  Report Type: 
  Country: None (occurrence: None)
  Receive Date: 20111011
  Receipt Date: 20110926
  Transmission Date: 20120403
  Serious: Yes (Disabling)
  Sender: FDA-Public Use
  Company Number: 2011SP045410

PATIENT
  Age: 68 Year
  Sex: Female

DRUGS (5)
  1. TEMODAL [Suspect]
     Indication: GLIOBLASTOMA
     Dosage: 150MG/M2; PO
     Route: 048
     Dates: start: 20101216, end: 20110808
  2. TEMOZOLOMIDE [Concomitant]
  3. ZOHPHREN [Concomitant]
  4. PREDNISOLONE [Concomitant]
  5. BACTRIM DS [Concomitant]

REACTIONS (2)
  - QUALITY OF LIFE DECREASED [None]
  - DEAFNESS NEUROSENSORY [None]
